FAERS Safety Report 8927957 (Version 1)
Quarter: 2012Q4

REPORT INFORMATION
  Report Type: Spontaneous
  Country: US (occurrence: None)
  Receive Date: 20121119
  Receipt Date: 20121119
  Transmission Date: 20130627
  Serious: Yes (Hospitalization, Other)
  Sender: FDA-Public Use
  Company Number: AUR-APL-2012-04817

PATIENT
  Age: 34 Year
  Sex: Male

DRUGS (1)
  1. ZOLPIDEM [Suspect]
     Indication: CIRCADIAN RHYTHM SLEEP DISORDER
     Dosage: 100-150 MG, DAILY

REACTIONS (7)
  - Drug dependence [None]
  - Grand mal convulsion [None]
  - Vision blurred [None]
  - Headache [None]
  - Anxiety [None]
  - Feeling jittery [None]
  - Alcohol withdrawal syndrome [None]
